FAERS Safety Report 19006197 (Version 1)
Quarter: 2021Q1

REPORT INFORMATION
  Report Type: Spontaneous
  Country: US (occurrence: US)
  Receive Date: 20210315
  Receipt Date: 20210315
  Transmission Date: 20210420
  Serious: No
  Sender: FDA-Public Use
  Company Number: US-JNJFOC-20210317426

PATIENT
  Sex: Male

DRUGS (3)
  1. FLUPHENAZINE [Suspect]
     Active Substance: FLUPHENAZINE
     Indication: PRODUCT USED FOR UNKNOWN INDICATION
     Route: 065
     Dates: end: 20110830
  2. RISPERDAL M?TAB [Suspect]
     Active Substance: RISPERIDONE
     Indication: PRODUCT USED FOR UNKNOWN INDICATION
     Dosage: ONCE A MORNING FOR 7 DAYS
     Route: 048
     Dates: end: 20110207
  3. RISPERDAL M?TAB [Suspect]
     Active Substance: RISPERIDONE
     Route: 048

REACTIONS (1)
  - Gynaecomastia [Unknown]
